FAERS Safety Report 7851498-8 (Version None)
Quarter: 2011Q4

REPORT INFORMATION
  Report Type: 
  Country: None (occurrence: None)
  Receive Date: 20111026
  Receipt Date: 20111024
  Transmission Date: 20120403
  Serious: Yes (Hospitalization)
  Sender: FDA-Public Use
  Company Number: CN-ROCHE-794134

PATIENT
  Sex: Male
  Weight: 82 kg

DRUGS (1)
  1. PEGINTERFERON ALFA-2A [Suspect]
     Indication: HEPATITIS B
     Dosage: ROUTE : IH , LAST DOSE PRIOR TO SAE : 05 MAY 2011.
     Route: 065

REACTIONS (1)
  - JAUNDICE [None]
